FAERS Safety Report 7186836-5 (Version None)
Quarter: 2010Q4

REPORT INFORMATION
  Report Type: 
  Country: None (occurrence: None)
  Receive Date: 20101222
  Receipt Date: 20101215
  Transmission Date: 20110411
  Serious: Yes (Hospitalization)
  Sender: FDA-Public Use
  Company Number: B0656405B

PATIENT
  Sex: Female
  Weight: 66 kg

DRUGS (7)
  1. LAPATINIB [Suspect]
     Route: 048
     Dates: start: 20100414
  2. PACLITAXEL [Suspect]
     Dosage: 80MGM2 WEEKLY
     Route: 042
     Dates: start: 20100414
  3. TRASTUZUMAB [Suspect]
     Route: 042
     Dates: start: 20100414
  4. OMEPRAZOLE [Concomitant]
     Indication: GASTRIC DISORDER
     Dosage: 40MG PER DAY
     Route: 048
     Dates: start: 20100122
  5. PAROXETINE HCL [Concomitant]
     Dosage: 20MG PER DAY
     Route: 048
     Dates: start: 19980101
  6. LOPERAMIDE [Concomitant]
     Dosage: 2MG AS REQUIRED
     Route: 048
     Dates: start: 20100503, end: 20101106
  7. PREGABALIN [Concomitant]
     Route: 048
     Dates: start: 20100811

REACTIONS (5)
  - CHILLS [None]
  - DYSPNOEA [None]
  - FEELING COLD [None]
  - PNEUMONIA [None]
  - PYREXIA [None]
